FAERS Safety Report 7406201-2 (Version None)
Quarter: 2011Q2

REPORT INFORMATION
  Report Type: 
  Country: None (occurrence: None)
  Receive Date: 20110405
  Receipt Date: 20110405
  Transmission Date: 20111010
  Serious: Yes (Life-Threatening, Hospitalization)
  Sender: FDA-Public Use
  Company Number: None

PATIENT
  Age: 30 Year
  Sex: Female
  Weight: 49.8957 kg

DRUGS (1)
  1. ULTRAVIST BAYER [Suspect]
     Indication: COMPUTERISED TOMOGRAM
     Dates: start: 20100605, end: 20100605

REACTIONS (1)
  - HYPERSENSITIVITY [None]
